FAERS Safety Report 7178241-2 (Version None)
Quarter: 2010Q4

REPORT INFORMATION
  Report Type: 
  Country: None (occurrence: None)
  Receive Date: 20101220
  Receipt Date: 20101210
  Transmission Date: 20110411
  Serious: Yes (Hospitalization)
  Sender: FDA-Public Use
  Company Number: IT-MEDIMMUNE-MEDI-0011987

PATIENT
  Sex: Male

DRUGS (1)
  1. SYNAGIS [Suspect]
     Route: 030
     Dates: start: 20101111, end: 20101111

REACTIONS (3)
  - ASTHENIA [None]
  - HYPOTENSION [None]
  - HYPOTONIC-HYPORESPONSIVE EPISODE [None]
